FAERS Safety Report 20442541 (Version 4)
Quarter: 2024Q1

REPORT INFORMATION
  Report Type: Report from Study
  Country: US (occurrence: US)
  Receive Date: 20220208
  Receipt Date: 20240202
  Transmission Date: 20240410
  Serious: Yes (Other)
  Sender: FDA-Public Use
  Company Number: US-KYOWAKIRIN-2022BKK001485

PATIENT

DRUGS (15)
  1. CRYSVITA [Suspect]
     Active Substance: BUROSUMAB-TWZA
     Indication: Hereditary hypophosphataemic rickets
     Dosage: 60 MG (COMBINED WITH 10 MG OF CRYSVITA STRENGTH 10 MG/ML TO ACHIEVE A TOTAL DOSE OF 70 MG), EVERY 4
     Route: 058
     Dates: start: 20210521
  2. CRYSVITA [Suspect]
     Active Substance: BUROSUMAB-TWZA
     Dosage: 70 MG, 1X/4 WEEKS  (10 MG COMBINED WITH 60 MG OF CRYSVITA STRENGTH 30 MG/ML TO ACHIEVE A TOTAL DOSE
     Route: 058
  3. CRYSVITA [Suspect]
     Active Substance: BUROSUMAB-TWZA
     Dosage: 70 MG, 1X/4 WEEKS  (10 MG COMBINED WITH 60 MG OF CRYSVITA STRENGTH 30 MG/ML TO ACHIEVE A TOTAL DOSE
     Route: 058
     Dates: start: 20231206
  4. CRYSVITA [Suspect]
     Active Substance: BUROSUMAB-TWZA
     Dosage: 70 MG, 1X/4 WEEKS
     Route: 058
     Dates: start: 202401
  5. CRYSVITA [Suspect]
     Active Substance: BUROSUMAB-TWZA
     Indication: Hereditary hypophosphataemic rickets
     Dosage: 10 MG (COMBINED WITH 60 MG OF CRYSVITA STRENGTH 30 MG/ML TO ACHIEVE A TOTAL DOSE OF 70 MG), EVERY 4
     Route: 058
     Dates: start: 20210521
  6. CRYSVITA [Suspect]
     Active Substance: BUROSUMAB-TWZA
     Dosage: 70 MG, 1X/4 WEEKS (10 MG COMBINED WITH 60 MG OF CRYSVITA STRENGTH 30 MG/ML TO ACHIEVE A TOTAL DOSE O
     Route: 058
  7. CRYSVITA [Suspect]
     Active Substance: BUROSUMAB-TWZA
     Dosage: 70 MG, 1X/4 WEEKS (10 MG COMBINED WITH 60 MG OF CRYSVITA STRENGTH 30 MG/ML TO ACHIEVE A TOTAL DOSE O
     Route: 058
     Dates: start: 20231206
  8. CRYSVITA [Suspect]
     Active Substance: BUROSUMAB-TWZA
     Dosage: 70 MG, 1X/4 WEEKS
     Route: 058
     Dates: start: 202401
  9. CRYSVITA [Concomitant]
     Active Substance: BUROSUMAB-TWZA
     Indication: Product used for unknown indication
     Dosage: UNK
     Route: 065
  10. SYNTHROID [Concomitant]
     Active Substance: LEVOTHYROXINE SODIUM
     Indication: Product used for unknown indication
     Dosage: UNK
     Route: 065
  11. ESTROGENS [Concomitant]
     Active Substance: ESTROGENS
     Indication: Product used for unknown indication
     Dosage: UNK
     Route: 065
  12. PROGESTERONE [Concomitant]
     Active Substance: PROGESTERONE
     Indication: Product used for unknown indication
     Dosage: UNK
     Route: 065
  13. VITAMIN D NOS [Concomitant]
     Active Substance: VITAMIN D NOS
     Indication: Product used for unknown indication
     Dosage: UNK
     Route: 065
  14. ONDANSETRON [Concomitant]
     Active Substance: ONDANSETRON
     Indication: Product used for unknown indication
     Dosage: UNK
     Route: 065
  15. HYDROMORPHONE [Concomitant]
     Active Substance: HYDROMORPHONE
     Indication: Product used for unknown indication
     Dosage: UNK
     Route: 065

REACTIONS (9)
  - Fall [Unknown]
  - Lower limb fracture [Unknown]
  - Tibia fracture [Unknown]
  - Fibula fracture [Unknown]
  - Gait disturbance [Unknown]
  - Hypoaesthesia [Unknown]
  - Muscle spasms [Unknown]
  - Joint stiffness [Unknown]
  - Restless legs syndrome [Unknown]

NARRATIVE: CASE EVENT DATE: 20220117
